FAERS Safety Report 8402024-6 (Version None)
Quarter: 2012Q2

REPORT INFORMATION
  Report Type: 
  Country: None (occurrence: None)
  Receive Date: 20120529
  Receipt Date: 20120515
  Transmission Date: 20120825
  Serious: Yes (Death, Other)
  Sender: FDA-Public Use
  Company Number: ENTC2012-0192

PATIENT
  Age: 75 Year
  Sex: Male

DRUGS (2)
  1. STALEVO 100 [Suspect]
     Indication: PARKINSON'S DISEASE
     Dosage: 3 TABLETS DAILY OF 100/25/200 MG ORAL ; 3 TABLETS DAILY OF 150/37.5/200 MG ORAL
     Route: 048
     Dates: start: 20090525
  2. STALEVO 100 [Suspect]
     Indication: PARKINSON'S DISEASE
     Dosage: 3 TABLETS DAILY OF 100/25/200 MG ORAL ; 3 TABLETS DAILY OF 150/37.5/200 MG ORAL
     Route: 048
     Dates: start: 20090101

REACTIONS (4)
  - FEELING ABNORMAL [None]
  - MYOCARDIAL INFARCTION [None]
  - COUGH [None]
  - RESPIRATORY ARREST [None]
